FAERS Safety Report 4447079-9 (Version None)
Quarter: 2004Q3

REPORT INFORMATION
  Report Type: 
  Country: None (occurrence: None)
  Receive Date: 20040813
  Receipt Date: 20040510
  Transmission Date: 20050211
  Serious: No
  Sender: FDA-Public Use
  Company Number: S04-USA-03574-01

PATIENT
  Age: 81 Year
  Sex: Male

DRUGS (8)
  1. NAMENDA [Suspect]
     Indication: DEMENTIA ALZHEIMER'S TYPE
     Dosage: 5 MG QD PO
     Route: 048
     Dates: start: 20040505
  2. ARICEPT [Concomitant]
  3. PLAVIX [Concomitant]
  4. FUROSEMIDE [Concomitant]
  5. MULTIVITAMIN (NOS) [Concomitant]
  6. CALCIUM [Concomitant]
  7. SIMVASTATIN [Concomitant]
  8. LORATADINE [Concomitant]

REACTIONS (2)
  - RASH MACULO-PAPULAR [None]
  - VARICOSE VEIN [None]
